FAERS Safety Report 8552858 (Version 2)
Quarter: 2012Q4

REPORT INFORMATION
  Report Type: 
  Country: US (occurrence: US)
  Receive Date: 20120508
  Receipt Date: 20121228
  Transmission Date: 20130627
  Serious: Yes (Hospitalization, Other)
  Sender: FDA-Public Use
  Company Number: US-ELI_LILLY_AND_COMPANY-US201203007595

PATIENT
  Age: 71 None
  Sex: Female

DRUGS (7)
  1. FORTEO [Suspect]
     Indication: OSTEOPOROSIS
     Dosage: 20 ug, qd
     Route: 065
     Dates: start: 2004, end: 2006
  2. FORTEO [Suspect]
     Dosage: 20 ug, qd
     Route: 065
     Dates: start: 20120413, end: 20120421
  3. FORTEO [Suspect]
     Dosage: 20 ug, qd
     Dates: start: 201204
  4. MEDROL [Concomitant]
     Dosage: 4 mg, UNK
  5. CALCIUM [Concomitant]
  6. VITAMIN D NOS [Concomitant]
  7. TRAMADOL [Concomitant]
     Indication: PAIN

REACTIONS (24)
  - Road traffic accident [Unknown]
  - Cervical vertebral fracture [Unknown]
  - Dislocation of vertebra [Unknown]
  - Rib fracture [Unknown]
  - Liver contusion [Unknown]
  - Contusion [Unknown]
  - Incorrect drug administration duration [Unknown]
  - Spinal fracture [Unknown]
  - Rib fracture [Unknown]
  - Spinal fracture [Unknown]
  - Hypoaesthesia [Not Recovered/Not Resolved]
  - Paraesthesia [Unknown]
  - Adverse event [Unknown]
  - Paraesthesia [Unknown]
  - Hypoaesthesia [Not Recovered/Not Resolved]
  - Feeling hot [Unknown]
  - Malaise [Not Recovered/Not Resolved]
  - Flushing [Unknown]
  - Injection site erythema [Not Recovered/Not Resolved]
  - Blood potassium decreased [Unknown]
  - Rheumatoid arthritis [Unknown]
  - Drug dose omission [Unknown]
  - Arthralgia [Not Recovered/Not Resolved]
  - Spinal compression fracture [Unknown]
